FAERS Safety Report 6175202-7 (Version None)
Quarter: 2009Q2

REPORT INFORMATION
  Report Type: 
  Country: None (occurrence: None)
  Receive Date: 20090430
  Receipt Date: 20081217
  Transmission Date: 20091009
  Serious: No
  Sender: FDA-Public Use
  Company Number: US-ASTRAZENECA-2008UW28270

PATIENT
  Sex: Female
  Weight: 48.5 kg

DRUGS (3)
  1. NEXIUM [Suspect]
     Indication: GASTROOESOPHAGEAL REFLUX DISEASE
     Route: 048
     Dates: start: 20080601
  2. AMBIEN [Concomitant]
  3. OMEPRAZOLE [Concomitant]
     Dates: end: 20080601

REACTIONS (3)
  - DRUG INEFFECTIVE [None]
  - OROPHARYNGEAL PAIN [None]
  - PAIN IN JAW [None]
